FAERS Safety Report 6765634-8 (Version None)
Quarter: 2010Q2

REPORT INFORMATION
  Report Type: 
  Country: None (occurrence: None)
  Receive Date: 20100611
  Receipt Date: 20100601
  Transmission Date: 20101027
  Serious: Yes (Other)
  Sender: FDA-Public Use
  Company Number: US-PFIZER INC-2010068908

PATIENT
  Sex: Female
  Weight: 57.14 kg

DRUGS (5)
  1. LYRICA [Suspect]
     Indication: FACIAL PAIN
     Dosage: UNK MG, 3X/DAY
     Route: 048
  2. RELPAX [Suspect]
     Indication: MIGRAINE
     Dosage: 40 MG, AS NEEDED
     Route: 048
  3. ZOLOFT [Concomitant]
     Indication: FACIAL PAIN
     Dosage: 50 MG, 1X/DAY
     Route: 048
  4. KLONOPIN [Concomitant]
     Indication: FACIAL SPASM
     Dosage: 3 MG, 1X/DAY
     Route: 048
  5. OXYCONTIN [Concomitant]
     Indication: FACIAL PAIN
     Dosage: 30 MG, 1X/DAY
     Route: 048

REACTIONS (2)
  - URINARY INCONTINENCE [None]
  - VISION BLURRED [None]
